FAERS Safety Report 21555205 (Version 1)
Quarter: 2022Q4

REPORT INFORMATION
  Report Type: Other
  Country: JP (occurrence: JP)
  Receive Date: 20221104
  Receipt Date: 20221104
  Transmission Date: 20230112
  Serious: Yes (Other)
  Sender: FDA-Public Use
  Company Number: JP-CHUGAI-2021001814

PATIENT
  Age: 66 Year
  Sex: Male
  Weight: 48 kg

DRUGS (4)
  1. ENTRECTINIB [Suspect]
     Active Substance: ENTRECTINIB
     Indication: Non-small cell lung cancer
     Dosage: 600 MILLIGRAM, QD
     Route: 048
     Dates: end: 20210506
  2. ENTRECTINIB [Suspect]
     Active Substance: ENTRECTINIB
     Dosage: 400 MILLIGRAM, QD
     Route: 048
     Dates: start: 20210520, end: 20210527
  3. ENTRECTINIB [Suspect]
     Active Substance: ENTRECTINIB
     Dosage: 300 MILLIGRAM, QD
     Route: 048
     Dates: start: 20210610, end: 20210624
  4. ENTRECTINIB [Suspect]
     Active Substance: ENTRECTINIB
     Dosage: 200 MILLIGRAM, QD
     Route: 048
     Dates: start: 20210709

REACTIONS (1)
  - Renal disorder [Recovered/Resolved]
